FAERS Safety Report 7094867-9 (Version None)
Quarter: 2010Q4

REPORT INFORMATION
  Report Type: 
  Country: None (occurrence: None)
  Receive Date: 20101111
  Receipt Date: 20101103
  Transmission Date: 20110411
  Serious: Yes (Hospitalization)
  Sender: FDA-Public Use
  Company Number: US-BIOGENIDEC-2010BI038770

PATIENT
  Age: 52 Year
  Sex: Female
  Weight: 74 kg

DRUGS (3)
  1. AVONEX [Suspect]
     Indication: MULTIPLE SCLEROSIS
     Route: 030
     Dates: start: 19961101
  2. AVONEX [Suspect]
     Route: 030
  3. ARMOUR THYROID [Concomitant]
     Indication: THYROID DISORDER
     Dates: start: 19900101

REACTIONS (4)
  - BLOOD OESTROGEN INCREASED [None]
  - COGNITIVE DISORDER [None]
  - ENDOMETRIAL CANCER [None]
  - INCISION SITE INFECTION [None]
